FAERS Safety Report 15538151 (Version 1)
Quarter: 2018Q4

REPORT INFORMATION
  Report Type: Spontaneous
  Country: US (occurrence: US)
  Receive Date: 20181022
  Receipt Date: 20181022
  Transmission Date: 20190205
  Serious: No
  Sender: FDA-Public Use
  Company Number: US-ARALEZ PHARMACEUTICALS R+D INC.-2018-ARA-002524

PATIENT
  Sex: Female
  Weight: 53.97 kg

DRUGS (1)
  1. TOPROL XL [Suspect]
     Active Substance: METOPROLOL SUCCINATE
     Indication: HYPERTENSION
     Dosage: 50 MG, BID

REACTIONS (3)
  - Drug ineffective [Unknown]
  - Nervousness [Unknown]
  - Product substitution issue [Unknown]

NARRATIVE: CASE EVENT DATE: 2018
